FAERS Safety Report 7249091-3 (Version None)
Quarter: 2011Q1

REPORT INFORMATION
  Report Type: 
  Country: None (occurrence: None)
  Receive Date: 20110121
  Receipt Date: 20110121
  Transmission Date: 20110831
  Serious: No
  Sender: FDA-Public Use
  Company Number: None

PATIENT
  Age: 43 Year
  Sex: Male
  Weight: 77.1115 kg

DRUGS (1)
  1. EQUATE WART REMOVER 17% EQUATE [Suspect]
     Indication: SKIN PAPILLOMA
     Dates: start: 20101014, end: 20101101

REACTIONS (1)
  - DRUG INEFFECTIVE [None]
